FAERS Safety Report 22945013 (Version 3)
Quarter: 2023Q4

REPORT INFORMATION
  Report Type: Spontaneous
  Country: BR (occurrence: BR)
  Receive Date: 20230914
  Receipt Date: 20231221
  Transmission Date: 20240109
  Serious: Yes (Other)
  Sender: FDA-Public Use
  Company Number: BR-TAKEDA-2023TUS088549

PATIENT
  Age: 51 Year
  Sex: Female

DRUGS (1)
  1. ADCETRIS [Suspect]
     Active Substance: BRENTUXIMAB VEDOTIN
     Indication: Product used for unknown indication
     Dosage: UNK
     Route: 065

REACTIONS (10)
  - Neoplasm recurrence [Unknown]
  - Graft versus host disease [Unknown]
  - Cutaneous T-cell lymphoma [Unknown]
  - Complications of bone marrow transplant [Unknown]
  - Tuberculosis [Unknown]
  - Neoplasm progression [Unknown]
  - Disease progression [Unknown]
  - Ulcer [Unknown]
  - Night sweats [Unknown]
  - Drug effect less than expected [Unknown]

NARRATIVE: CASE EVENT DATE: 20210201
